FAERS Safety Report 7773707-6 (Version None)
Quarter: 2011Q3

REPORT INFORMATION
  Report Type: 
  Country: None (occurrence: None)
  Receive Date: 20110920
  Receipt Date: 20110909
  Transmission Date: 20111222
  Serious: Yes (Hospitalization)
  Sender: FDA-Public Use
  Company Number: 2011-3714

PATIENT
  Age: 42 Year
  Sex: Female

DRUGS (6)
  1. SEROQUEL [Concomitant]
  2. OMEPRAZOLE [Concomitant]
  3. RESTYLANE (HYALURONIC ACID) [Concomitant]
  4. LISINOPRIL [Concomitant]
  5. DYSPORT [Suspect]
     Indication: SKIN WRINKLING
     Dosage: SINGLE CYCLE
     Dates: start: 20110902, end: 20110902
  6. DYSPORT [Suspect]
     Indication: OFF LABEL USE
     Dosage: SINGLE CYCLE
     Dates: start: 20110902, end: 20110902

REACTIONS (1)
  - PULMONARY HYPERTENSION [None]
